FAERS Safety Report 7018956-X (Version None)
Quarter: 2010Q3

REPORT INFORMATION
  Report Type: 
  Country: None (occurrence: None)
  Receive Date: 20100928
  Receipt Date: 20100828
  Transmission Date: 20110219
  Serious: Yes (Disabling)
  Sender: FDA-Public Use
  Company Number: PHHY2010CA47057

PATIENT
  Sex: Female

DRUGS (7)
  1. ACLASTA [Suspect]
     Indication: OSTEOPOROSIS
     Dosage: 5 MG
     Dates: start: 20080101
  2. ACLASTA [Suspect]
     Dosage: 5 MG
     Dates: start: 20090828
  3. HYZAAR [Concomitant]
  4. ASPIRIN [Concomitant]
  5. LIPITOR [Concomitant]
  6. PARIET [Concomitant]
  7. FEMARA [Concomitant]

REACTIONS (7)
  - BLISTER [None]
  - BURNING SENSATION [None]
  - DIZZINESS [None]
  - FATIGUE [None]
  - HERPES ZOSTER [None]
  - NAUSEA [None]
  - PAIN [None]
